FAERS Safety Report 9861081 (Version 1)
Quarter: 2014Q1

REPORT INFORMATION
  Report Type: Spontaneous
  Country: US (occurrence: None)
  Receive Date: 20140131
  Receipt Date: 20140131
  Transmission Date: 20141002
  Serious: Yes (Life-Threatening, Hospitalization, Disabling)
  Sender: FDA-Public Use
  Company Number: None

PATIENT
  Age: 26 Year
  Sex: Female
  Weight: 54.43 kg

DRUGS (1)
  1. OCELLA [Suspect]
     Indication: CONTRACEPTION
     Dates: start: 20130501, end: 20130817

REACTIONS (3)
  - Intracranial venous sinus thrombosis [None]
  - Cerebral haemorrhage [None]
  - Cerebrovascular accident [None]
